FAERS Safety Report 8012668-1 (Version None)
Quarter: 2011Q4

REPORT INFORMATION
  Report Type: 
  Country: None (occurrence: None)
  Receive Date: 20111223
  Receipt Date: 20111223
  Transmission Date: 20120403
  Serious: Yes (Hospitalization, Disabling)
  Sender: FDA-Public Use
  Company Number: None

PATIENT
  Age: 44 Year
  Sex: Male
  Weight: 77.1115 kg

DRUGS (2)
  1. VIIBRYD [Suspect]
     Indication: ANXIETY
     Dosage: 10MG 1 - WEEK  20MG 2ND WEEK 40MG 3RD WEEK
     Dates: start: 20110701, end: 20110726
  2. VIIBRYD [Suspect]
     Indication: DEPRESSION
     Dosage: 10MG 1 - WEEK  20MG 2ND WEEK 40MG 3RD WEEK
     Dates: start: 20110701, end: 20110726

REACTIONS (4)
  - MUSCLE DISORDER [None]
  - JOINT SWELLING [None]
  - OEDEMA PERIPHERAL [None]
  - LYMPHADENOPATHY [None]
